FAERS Safety Report 13524189 (Version 2)
Quarter: 2017Q4

REPORT INFORMATION
  Report Type: Report from Study
  Country: US (occurrence: US)
  Receive Date: 20170508
  Receipt Date: 20171102
  Transmission Date: 20180320
  Serious: Yes (Hospitalization, Other)
  Sender: FDA-Public Use
  Company Number: US-JNJFOC-20170206356

PATIENT
  Age: 65 Year
  Sex: Male

DRUGS (4)
  1. IMBRUVICA [Suspect]
     Active Substance: IBRUTINIB
     Indication: CHRONIC LYMPHOCYTIC LEUKAEMIA
     Route: 048
     Dates: start: 20171017
  2. IMBRUVICA [Suspect]
     Active Substance: IBRUTINIB
     Indication: CHRONIC LYMPHOCYTIC LEUKAEMIA
     Route: 048
     Dates: start: 20140317
  3. IMBRUVICA [Suspect]
     Active Substance: IBRUTINIB
     Indication: MENINGIOMA MALIGNANT
     Route: 048
     Dates: start: 20171017
  4. IMBRUVICA [Suspect]
     Active Substance: IBRUTINIB
     Indication: MENINGIOMA MALIGNANT
     Route: 048
     Dates: start: 20140317

REACTIONS (7)
  - Fall [Recovered/Resolved]
  - Off label use [Unknown]
  - Post procedural stroke [Recovered/Resolved]
  - Pain [Unknown]
  - Femur fracture [Unknown]
  - Pituitary tumour [Not Recovered/Not Resolved]
  - Product use in unapproved indication [Unknown]

NARRATIVE: CASE EVENT DATE: 20140317
